FAERS Safety Report 21607439 (Version 1)
Quarter: 2022Q4

REPORT INFORMATION
  Report Type: Spontaneous
  Country: US (occurrence: US)
  Receive Date: 20221117
  Receipt Date: 20221117
  Transmission Date: 20230113
  Serious: No
  Sender: FDA-Public Use
  Company Number: US-AUROBINDO-AUR-APL-2022-003437

PATIENT
  Sex: Female

DRUGS (3)
  1. LOSARTAN [Suspect]
     Active Substance: LOSARTAN
     Indication: Product used for unknown indication
     Dosage: 25 MILLIGRAM
     Route: 065
     Dates: start: 2020
  2. LOSARTAN [Suspect]
     Active Substance: LOSARTAN
     Dosage: 50 MILLIGRAM
     Route: 065
     Dates: start: 2020
  3. LOSARTAN [Suspect]
     Active Substance: LOSARTAN
     Dosage: 100 MILLIGRAM
     Route: 065
     Dates: start: 2020

REACTIONS (4)
  - Dizziness [Unknown]
  - Abdominal pain upper [Unknown]
  - Balance disorder [Unknown]
  - Diarrhoea [Unknown]
